FAERS Safety Report 6682678-5 (Version None)
Quarter: 2010Q2

REPORT INFORMATION
  Report Type: 
  Country: None (occurrence: None)
  Receive Date: 20100415
  Receipt Date: 20100406
  Transmission Date: 20101027
  Serious: Yes (Hospitalization, Other)
  Sender: FDA-Public Use
  Company Number: US-PFIZER INC-2008073730

PATIENT
  Sex: Male

DRUGS (5)
  1. NEURONTIN [Suspect]
     Indication: NEUROPATHY PERIPHERAL
     Dosage: 1800 MG, 2X/DAY
     Route: 048
  2. FLEXERIL [Suspect]
     Dates: start: 20080101, end: 20080101
  3. AMITRIPTYLINE [Suspect]
     Indication: NEUROPATHY PERIPHERAL
     Route: 048
     Dates: start: 20080801
  4. ASPIRIN [Concomitant]
     Dosage: 81 MG, UNK
  5. METOPROLOL [Concomitant]
     Dosage: UNK

REACTIONS (12)
  - CARDIAC OPERATION [None]
  - CONVULSION [None]
  - DEPRESSION [None]
  - FALL [None]
  - LOSS OF CONSCIOUSNESS [None]
  - NEOPLASM SKIN [None]
  - NEUROPATHY PERIPHERAL [None]
  - OVERDOSE [None]
  - PAIN [None]
  - SELF-INJURIOUS IDEATION [None]
  - SKIN LACERATION [None]
  - TUNNEL VISION [None]
